FAERS Safety Report 15562675 (Version 1)
Quarter: 2018Q4

REPORT INFORMATION
  Report Type: Spontaneous
  Country: US (occurrence: US)
  Receive Date: 20181029
  Receipt Date: 20181029
  Transmission Date: 20190205
  Serious: Yes (Other)
  Sender: FDA-Public Use
  Company Number: US-LPDUSPRD-20181952

PATIENT
  Age: 18 Month
  Sex: Male

DRUGS (1)
  1. INJECTAFER [Suspect]
     Active Substance: FERRIC CARBOXYMALTOSE
     Dosage: 15 MG/KG; MAX 750 MG PER DOSE
     Route: 042

REACTIONS (3)
  - Extravasation [Unknown]
  - Skin discolouration [Unknown]
  - Product use issue [Unknown]
